FAERS Safety Report 23284074 (Version 1)
Quarter: 2023Q4

REPORT INFORMATION
  Report Type: Spontaneous
  Country: EU (occurrence: EU)
  Receive Date: 20231211
  Receipt Date: 20231211
  Transmission Date: 20240110
  Serious: Yes (Hospitalization)
  Sender: FDA-Public Use
  Company Number: None

PATIENT

DRUGS (4)
  1. BUPRENORPHINE HYDROCHLORIDE [Suspect]
     Active Substance: BUPRENORPHINE HYDROCHLORIDE
     Dosage: 8MG PAR JOUR + UN DEMI COMPRIM?
     Route: 048
     Dates: start: 2022, end: 20220531
  2. COCAINE [Suspect]
     Active Substance: COCAINE
     Dosage: 3G PAR SEMAINE
     Route: 045
     Dates: start: 1985
  3. CANNABIS SATIVA SUBSP. INDICA TOP [Suspect]
     Active Substance: CANNABIS SATIVA SUBSP. INDICA TOP
     Dosage: 5 ? 10 JOINTS/JR
     Route: 055
     Dates: start: 1985
  4. BENZODIAZEPINE [Suspect]
     Active Substance: BENZODIAZEPINE
     Dosage: UNK
     Dates: start: 1985

REACTIONS (1)
  - Drug detoxification [Recovered/Resolved]

NARRATIVE: CASE EVENT DATE: 20220531
